FAERS Safety Report 4972275-1 (Version None)
Quarter: 2006Q2

REPORT INFORMATION
  Report Type: 
  Country: None (occurrence: None)
  Receive Date: 20060407
  Receipt Date: 20060330
  Transmission Date: 20061013
  Serious: Yes (Other)
  Sender: FDA-Public Use
  Company Number: 2006BI003730

PATIENT

DRUGS (4)
  1. AVONEX [Suspect]
     Indication: MULTIPLE SCLEROSIS
     Dosage: 30 UG;QW;IM
     Route: 030
     Dates: start: 20040401, end: 20060328
  2. SYNTHROID [Concomitant]
  3. FEMARA [Concomitant]
  4. TAMOXIFEN CITRATE [Concomitant]

REACTIONS (3)
  - BLADDER DISORDER [None]
  - BREAST CANCER FEMALE [None]
  - PALPITATIONS [None]
